FAERS Safety Report 7481885-1 (Version None)
Quarter: 2011Q2

REPORT INFORMATION
  Report Type: 
  Country: None (occurrence: None)
  Receive Date: 20110506
  Receipt Date: 20110422
  Transmission Date: 20111010
  Serious: Yes (Other)
  Sender: FDA-Public Use
  Company Number: 017286

PATIENT
  Sex: Female

DRUGS (3)
  1. FOLIC ACID [Concomitant]
  2. PRENATAL VITAMINS [Concomitant]
  3. KEPPRA [Suspect]
     Indication: EPILEPSY
     Dosage: 500 MG BID;

REACTIONS (3)
  - OVARIAN CYST RUPTURED [None]
  - PROLONGED PREGNANCY [None]
  - DRUG EXPOSURE DURING PREGNANCY [None]
